FAERS Safety Report 4547330-0 (Version None)
Quarter: 2005Q1

REPORT INFORMATION
  Report Type: 
  Country: None (occurrence: None)
  Receive Date: 20050107
  Receipt Date: 20041119
  Transmission Date: 20050727
  Serious: Yes (Other)
  Sender: FDA-Public Use
  Company Number: PHEH2004US12570

PATIENT
  Age: 57 Year
  Sex: Male

DRUGS (8)
  1. LIDOCAINE [Concomitant]
     Indication: ANAESTHESIA
  2. DECADRON                                /CAN/ [Concomitant]
     Dosage: GIVEN WITH CHEMOTHERAPY
  3. ANDROGENS AND ESTROGENS [Concomitant]
     Indication: PROSTATE CANCER
  4. CISPLATIN [Concomitant]
     Dosage: SIX CYCLES
     Dates: start: 20030820, end: 20031204
  5. VP-16 [Concomitant]
     Dosage: SIX CYCLES
     Dates: start: 20030820, end: 20031204
  6. GEMCITABINE [Suspect]
     Indication: METASTATIC NEOPLASM
     Dosage: 5 CYCLES
     Dates: start: 20040805, end: 20041129
  7. TAXOL [Concomitant]
     Indication: METASTATIC NEOPLASM
     Dosage: 5 CYCLES
     Dates: start: 20040805, end: 20040129
  8. ZOMETA [Suspect]
     Dosage: 4 MG EVERY 4 WEEKS
     Route: 042
     Dates: start: 20030730

REACTIONS (6)
  - ASEPTIC NECROSIS BONE [None]
  - OSTEONECROSIS [None]
  - SPINAL LAMINECTOMY [None]
  - TOOTH ABSCESS [None]
  - TOOTH EXTRACTION [None]
  - WOUND DEBRIDEMENT [None]
